FAERS Safety Report 11170715 (Version 1)
Quarter: 2015Q2

REPORT INFORMATION
  Report Type: Spontaneous
  Country: US (occurrence: US)
  Receive Date: 20150608
  Receipt Date: 20150608
  Transmission Date: 20150821
  Serious: Yes (Other)
  Sender: FDA-Public Use
  Company Number: US-SA-2015SA077714

PATIENT

DRUGS (2)
  1. LANTUS SOLOSTAR [Suspect]
     Active Substance: INSULIN GLARGINE
     Indication: DIABETES MELLITUS
     Dosage: DOSE:80 UNIT(S)
     Route: 065
     Dates: start: 201504, end: 201505
  2. SOLOSTAR [Concomitant]
     Active Substance: DEVICE
     Indication: DIABETES MELLITUS
     Dates: start: 201504, end: 201505

REACTIONS (5)
  - Burning sensation [Unknown]
  - Movement disorder [Unknown]
  - Vomiting [Unknown]
  - Hypoaesthesia oral [Unknown]
  - Seizure [Unknown]

NARRATIVE: CASE EVENT DATE: 20150528
